FAERS Safety Report 18210147 (Version 2)
Quarter: 2020Q3

REPORT INFORMATION
  Report Type: Spontaneous
  Country: TW (occurrence: TW)
  Receive Date: 20200829
  Receipt Date: 20200831
  Transmission Date: 20201103
  Serious: Yes (Other)
  Sender: FDA-Public Use
  Company Number: TW-AMGEN-TWNSP2020140341

PATIENT
  Age: 55 Year
  Sex: Female

DRUGS (10)
  1. RASITOL [FUROSEMIDE] [Concomitant]
     Dosage: 0.5 TAB, QDAM
     Route: 048
  2. EURODIN [ESTAZOLAM] [Concomitant]
     Dosage: 1 TAB, HS PRN
     Route: 048
  3. PARAMOL [PARACETAMOL] [Concomitant]
     Dosage: 1 TAB BID+HS
     Route: 048
  4. PLAQUENIL [HYDROXYCHLOROQUINE PHOSPHATE] [Concomitant]
     Active Substance: HYDROXYCHLOROQUINE DIPHOSPHATE
     Dosage: 1 TAB, BID
     Route: 048
  5. ARAVA [Concomitant]
     Active Substance: LEFLUNOMIDE
     Dosage: 1 TAB, QD
     Route: 048
  6. STROCAIN [OXETACAINE] [Concomitant]
     Dosage: 1 TAB, BID
     Route: 048
  7. ENBREL [Suspect]
     Active Substance: ETANERCEPT
     Indication: RHEUMATOID ARTHRITIS
     Dosage: 50 MG, WEEKLY (QW)
     Route: 058
     Dates: start: 20161206
  8. ASPARA?CA [Concomitant]
     Active Substance: CALCIUM ASPARTATE
     Dosage: 1 TAB, BID
     Route: 048
  9. COMPESOLON [Concomitant]
     Active Substance: PREDNISOLONE
     Dosage: 1 TAB, QD
     Route: 048
  10. ARCOXIA [Concomitant]
     Active Substance: ETORICOXIB
     Dosage: 1 TAB, QOD
     Route: 048

REACTIONS (1)
  - Device dislocation [Unknown]
